FAERS Safety Report 9087044 (Version 1)
Quarter: 2013Q1

REPORT INFORMATION
  Report Type: Spontaneous
  Country: US (occurrence: US)
  Receive Date: 20130217
  Receipt Date: 20130217
  Transmission Date: 20140127
  Serious: Yes (Other)
  Sender: FDA-Public Use
  Company Number: US-JNJFOC-20130204348

PATIENT
  Sex: Female
  Weight: 68.04 kg

DRUGS (3)
  1. REMICADE [Suspect]
     Indication: CROHN^S DISEASE
     Dosage: RESTARTED AT REGULAR DOSE (UNSPECIFIED)
     Route: 042
     Dates: start: 201211
  2. REMICADE [Suspect]
     Indication: CROHN^S DISEASE
     Dosage: ON DOUBLE DOSE
     Route: 042
     Dates: start: 201205, end: 2012
  3. NUVARING [Concomitant]
     Indication: CONTRACEPTION
     Route: 065

REACTIONS (3)
  - Weight increased [Not Recovered/Not Resolved]
  - Asthenia [Not Recovered/Not Resolved]
  - Discomfort [Not Recovered/Not Resolved]
